FAERS Safety Report 23321168 (Version 1)
Quarter: 2023Q4

REPORT INFORMATION
  Report Type: Report from Study
  Country: IT (occurrence: IT)
  Receive Date: 20231220
  Receipt Date: 20231220
  Transmission Date: 20240109
  Serious: Yes (Other)
  Sender: FDA-Public Use
  Company Number: IT-UCBSA-2023053440

PATIENT
  Age: 76 Year
  Sex: Male

DRUGS (1)
  1. NEUPRO [Suspect]
     Active Substance: ROTIGOTINE
     Indication: Parkinson^s disease
     Dosage: 4 MILLIGRAM, ONCE DAILY (QD) 28 TRANSDERMAL PATCHES
     Route: 062

REACTIONS (5)
  - Arrhythmia [Unknown]
  - Hypokinesia [Not Recovered/Not Resolved]
  - Cardiac murmur [Unknown]
  - Breath sounds abnormal [Unknown]
  - Incorrect dose administered [Unknown]

NARRATIVE: CASE EVENT DATE: 20231001
